FAERS Safety Report 5490927-4 (Version None)
Quarter: 2007Q4

REPORT INFORMATION
  Report Type: 
  Country: None (occurrence: None)
  Receive Date: 20071019
  Receipt Date: 20071009
  Transmission Date: 20080405
  Serious: Yes (Hospitalization, Other)
  Sender: FDA-Public Use
  Company Number: PH-PFIZER INC-2007086416

PATIENT
  Age: 37 Year
  Sex: Female

DRUGS (2)
  1. XANOR [Suspect]
     Indication: DEPRESSION
     Route: 048
  2. LEXAPRO [Concomitant]

REACTIONS (17)
  - ALOPECIA [None]
  - ANAL SPHINCTER ATONY [None]
  - ANOREXIA [None]
  - AREFLEXIA [None]
  - ARTHRALGIA [None]
  - BLOOD PRESSURE INCREASED [None]
  - CONSTIPATION [None]
  - GAIT DISTURBANCE [None]
  - HYPOAESTHESIA [None]
  - MUSCULAR WEAKNESS [None]
  - PAIN [None]
  - PERONEAL NERVE PALSY [None]
  - SENSATION OF HEAVINESS [None]
  - SENSORY DISTURBANCE [None]
  - TACHYCARDIA [None]
  - URINARY INCONTINENCE [None]
  - WEIGHT DECREASED [None]
